FAERS Safety Report 10802192 (Version 1)
Quarter: 2015Q1

REPORT INFORMATION
  Report Type: Spontaneous
  Country: US (occurrence: US)
  Receive Date: 20150217
  Receipt Date: 20150217
  Transmission Date: 20150721
  Serious: No
  Sender: FDA-Public Use
  Company Number: US-GE HEALTHCARE MEDICAL DIAGNOSTICS-VISP-PR-1502S-0032

PATIENT
  Age: 46 Year
  Sex: Female

DRUGS (2)
  1. VISIPAQUE [Suspect]
     Active Substance: IODIXANOL
     Indication: DIAGNOSTIC PROCEDURE
  2. VISIPAQUE [Suspect]
     Active Substance: IODIXANOL
     Indication: LYMPHADENOPATHY
     Route: 042
     Dates: start: 20150205, end: 20150205

REACTIONS (3)
  - Lip swelling [Unknown]
  - Pruritus [Unknown]
  - Cheilitis [Unknown]

NARRATIVE: CASE EVENT DATE: 20150205
